FAERS Safety Report 19619642 (Version 1)
Quarter: 2021Q3

REPORT INFORMATION
  Report Type: Spontaneous
  Country: US (occurrence: US)
  Receive Date: 20210728
  Receipt Date: 20210728
  Transmission Date: 20211014
  Serious: Yes (Hospitalization)
  Sender: FDA-Public Use
  Company Number: US-ROCHE-2674764

PATIENT
  Age: 65 Year
  Sex: Female

DRUGS (2)
  1. XELODA [Suspect]
     Active Substance: CAPECITABINE
     Indication: PRODUCT USED FOR UNKNOWN INDICATION
     Dosage: DATE OF USE: 5/17/2020, MD PUT MEDICATION ON HOLD AND INSTRUCTED PT TO RESUME THIS PAST SUNDAY, 9/6.
     Route: 048
     Dates: start: 20200517
  2. XELODA [Suspect]
     Active Substance: CAPECITABINE
     Dosage: 2 TABLETS, BID, ONGOING: NOT REPORTED
     Route: 048
     Dates: start: 20200906

REACTIONS (5)
  - Pain in extremity [Recovering/Resolving]
  - Palmar-plantar erythrodysaesthesia syndrome [Recovered/Resolved]
  - Skin discolouration [Recovering/Resolving]
  - Peripheral swelling [Recovering/Resolving]
  - Secretion discharge [Recovering/Resolving]

NARRATIVE: CASE EVENT DATE: 20200825
